FAERS Safety Report 9364793 (Version 1)
Quarter: 2013Q2

REPORT INFORMATION
  Report Type: Spontaneous
  Country: JP (occurrence: JP)
  Receive Date: 20130624
  Receipt Date: 20130624
  Transmission Date: 20140414
  Serious: Yes (Hospitalization, Other)
  Sender: FDA-Public Use
  Company Number: JP-ASTRAZENECA-2013SE47899

PATIENT
  Age: 40 Year
  Sex: Male

DRUGS (4)
  1. SEROQUEL [Suspect]
     Route: 048
     Dates: end: 201306
  2. SEROQUEL [Suspect]
     Dosage: GENERIC
     Route: 048
     Dates: start: 201306
  3. ZYPREXA [Concomitant]
     Route: 048
  4. MULTIPLE MEDICATION [Concomitant]

REACTIONS (2)
  - Liver disorder [Unknown]
  - Cardiovascular disorder [Unknown]
